FAERS Safety Report 11821666 (Version 1)
Quarter: 2015Q4

REPORT INFORMATION
  Report Type: Spontaneous
  Country: US (occurrence: US)
  Receive Date: 20151210
  Receipt Date: 20151210
  Transmission Date: 20160305
  Serious: No
  Sender: FDA-Public Use
  Company Number: US-JNJFOC-20150423087

PATIENT
  Sex: Female

DRUGS (11)
  1. TOCOPHEROL [Concomitant]
     Active Substance: TOCOPHEROL
  2. ALEVE [Concomitant]
     Active Substance: NAPROXEN SODIUM
  3. AZITHROMYCIN [Concomitant]
     Active Substance: AZITHROMYCIN ANHYDROUS
  4. CENTRUM NOS [Concomitant]
  5. IMBRUVICA [Suspect]
     Active Substance: IBRUTINIB
     Indication: ACUTE LYMPHOCYTIC LEUKAEMIA
     Dosage: 3 CAPSULES
     Route: 048
     Dates: start: 20131224
  6. ACYCLOVIR. [Concomitant]
     Active Substance: ACYCLOVIR
  7. ASPIRIN. [Concomitant]
     Active Substance: ASPIRIN
  8. ROBITUSSIN (GUAIFENESIN) [Concomitant]
     Active Substance: GUAIFENESIN
  9. VITAMIN D [Concomitant]
     Active Substance: CHOLECALCIFEROL
  10. CALCIUM CARBONATE. [Concomitant]
     Active Substance: CALCIUM CARBONATE
  11. MELOXICAM. [Concomitant]
     Active Substance: MELOXICAM

REACTIONS (4)
  - Erythema [Recovering/Resolving]
  - Scab [Recovering/Resolving]
  - Pruritus [Recovering/Resolving]
  - Skin lesion [Recovering/Resolving]
